FAERS Safety Report 6974627-7 (Version None)
Quarter: 2010Q3

REPORT INFORMATION
  Report Type: 
  Country: None (occurrence: None)
  Receive Date: 20100909
  Receipt Date: 20081112
  Transmission Date: 20110219
  Serious: No
  Sender: FDA-Public Use
  Company Number: US-WYE-H06822508

PATIENT
  Age: 57 Year
  Sex: Female
  Weight: 54.48 kg

DRUGS (5)
  1. PROTONIX [Suspect]
     Indication: GASTROINTESTINAL HAEMORRHAGE
     Route: 048
     Dates: start: 20050101
  2. DIAZEPAM [Concomitant]
  3. CALCIUM [Concomitant]
  4. LORAZEPAM [Concomitant]
  5. FLEXERIL [Concomitant]

REACTIONS (4)
  - BLOOD IRON DECREASED [None]
  - HAEMATOCRIT DECREASED [None]
  - HAEMOGLOBIN DECREASED [None]
  - RED BLOOD CELL COUNT DECREASED [None]
